FAERS Safety Report 24341114 (Version 1)
Quarter: 2024Q3

REPORT INFORMATION
  Report Type: Spontaneous
  Country: CN (occurrence: None)
  Receive Date: 20240919
  Receipt Date: 20240919
  Transmission Date: 20241016
  Serious: Yes (Hospitalization, Other)
  Sender: UNICHEM
  Company Number: CN-Unichem Pharmaceuticals (USA) Inc-UCM202409-001155

PATIENT
  Age: 73 Year
  Sex: Male

DRUGS (4)
  1. CARBAMAZEPINE [Suspect]
     Active Substance: CARBAMAZEPINE
     Indication: Seizure
     Route: 048
  2. PHENYTOIN SODIUM [Suspect]
     Active Substance: PHENYTOIN SODIUM
     Indication: Seizure
     Route: 048
  3. IRBESARTAN [Concomitant]
     Active Substance: IRBESARTAN
     Indication: Hypertension
     Dosage: UNKNOWN
  4. CEFODIZIME SODIUM [Concomitant]
     Active Substance: CEFODIZIME SODIUM
     Indication: Infection
     Dosage: UNKNOWN

REACTIONS (2)
  - Fulminant type 1 diabetes mellitus [Recovered/Resolved]
  - SJS-TEN overlap [Recovered/Resolved]
